FAERS Safety Report 15000114 (Version 1)
Quarter: 2018Q3

REPORT INFORMATION
  Report Type: Spontaneous
  Country: US (occurrence: US)
  Receive Date: 20180612
  Receipt Date: 20180612
  Transmission Date: 20181010
  Serious: No
  Sender: FDA-Public Use
  Company Number: US-GLAXOSMITHKLINE-US2018101158

PATIENT
  Age: 55 Year
  Sex: Female

DRUGS (1)
  1. NICORETTE SPEARMINT BURST [Suspect]
     Active Substance: NICOTINE
     Indication: SMOKING CESSATION THERAPY
     Dosage: UNK, QID (GUMS)
     Dates: start: 201804, end: 201805

REACTIONS (2)
  - Drug ineffective [None]
  - Product use issue [Unknown]
